FAERS Safety Report 9684155 (Version 2)
Quarter: 2014Q1

REPORT INFORMATION
  Report Type: Spontaneous
  Country: IT (occurrence: IT)
  Receive Date: 20131112
  Receipt Date: 20140113
  Transmission Date: 20141002
  Serious: Yes (Hospitalization)
  Sender: FDA-Public Use
  Company Number: IT-WATSON-2013-20393

PATIENT
  Age: 66 Year
  Sex: Female

DRUGS (4)
  1. RISPERIDONE (UNKNOWN) [Suspect]
     Indication: INTENTIONAL SELF-INJURY
     Dosage: 16 MG, SINGLE
     Route: 048
     Dates: start: 20131006, end: 20131006
  2. CITALOPRAM (UNKNOWN) [Suspect]
     Indication: INTENTIONAL SELF-INJURY
     Dosage: 100 MG, SINGLE
     Route: 048
     Dates: start: 20131006, end: 20131006
  3. CARDIOASPIRIN [Suspect]
     Indication: INTENTIONAL SELF-INJURY
     Dosage: 3000 MG, SINGLE
     Route: 048
     Dates: start: 20131006, end: 20131006
  4. TRIATEC                            /00116401/ [Concomitant]
     Indication: PRODUCT USED FOR UNKNOWN INDICATION
     Dosage: 5 MG, UNK

REACTIONS (4)
  - Intentional self-injury [Recovering/Resolving]
  - Tachycardia [Recovering/Resolving]
  - Sopor [Recovering/Resolving]
  - Drug abuse [Recovering/Resolving]
